FAERS Safety Report 12828682 (Version 2)
Quarter: 2017Q3

REPORT INFORMATION
  Report Type: Spontaneous
  Country: US (occurrence: US)
  Receive Date: 20161007
  Receipt Date: 20170928
  Transmission Date: 20171127
  Serious: No
  Sender: FDA-Public Use
  Company Number: US-SA-2015SA216127

PATIENT
  Age: 41 Year
  Sex: Male

DRUGS (3)
  1. AUBAGIO [Suspect]
     Active Substance: TERIFLUNOMIDE
     Indication: MULTIPLE SCLEROSIS
     Route: 048
     Dates: start: 20160109
  2. PENICILLIN [Concomitant]
     Active Substance: PENICILLIN
  3. AUBAGIO [Suspect]
     Active Substance: TERIFLUNOMIDE
     Indication: MULTIPLE SCLEROSIS
     Route: 048
     Dates: start: 20151118

REACTIONS (6)
  - Sinusitis [Unknown]
  - Alopecia [Unknown]
  - Nasopharyngitis [Unknown]
  - Drug dose omission [Unknown]
  - Hypoaesthesia [Unknown]
  - Influenza [Unknown]

NARRATIVE: CASE EVENT DATE: 20151209
